FAERS Safety Report 4552751-6 (Version None)
Quarter: 2005Q1

REPORT INFORMATION
  Report Type: 
  Country: None (occurrence: None)
  Receive Date: 20050112
  Receipt Date: 20041230
  Transmission Date: 20050727
  Serious: Yes (Hospitalization)
  Sender: FDA-Public Use
  Company Number: 205917

PATIENT
  Age: 44 Year
  Sex: Female
  Weight: 90.7194 kg

DRUGS (2)
  1. AVONEX [Suspect]
     Indication: MULTIPLE SCLEROSIS
     Dosage: 30 UG; QW; IM
     Route: 030
  2. CLONAZEPAM [Concomitant]

REACTIONS (16)
  - ARTHRITIS [None]
  - BALANCE DISORDER [None]
  - CHOLECYSTITIS [None]
  - CHOLELITHIASIS [None]
  - CHOLESTEROSIS [None]
  - DIARRHOEA [None]
  - DYSARTHRIA [None]
  - FALL [None]
  - HIP FRACTURE [None]
  - IMPLANT SITE PAIN [None]
  - INCISION SITE COMPLICATION [None]
  - INFLAMMATION [None]
  - INSOMNIA [None]
  - MUSCLE HYPERTROPHY [None]
  - PAIN OF SKIN [None]
  - POST PROCEDURAL COMPLICATION [None]
